FAERS Safety Report 6409189-6 (Version None)
Quarter: 2009Q4

REPORT INFORMATION
  Report Type: 
  Country: None (occurrence: None)
  Receive Date: 20091021
  Receipt Date: 20091010
  Transmission Date: 20100525
  Serious: Yes (Hospitalization, Other)
  Sender: FDA-Public Use
  Company Number: PHEH2009US13638

PATIENT
  Sex: Female

DRUGS (3)
  1. EXJADE [Suspect]
     Indication: SICKLE CELL ANAEMIA
     Dosage: 2000 MG DAILY
     Route: 048
     Dates: start: 20071217
  2. EXJADE [Suspect]
     Indication: IRON METABOLISM DISORDER
  3. EXJADE [Suspect]
     Indication: IRON OVERLOAD

REACTIONS (3)
  - INFLUENZA LIKE ILLNESS [None]
  - PYREXIA [None]
  - SERUM FERRITIN INCREASED [None]
